FAERS Safety Report 12397428 (Version 1)
Quarter: 2016Q2

REPORT INFORMATION
  Report Type: Spontaneous
  Country: JP (occurrence: JP)
  Receive Date: 20160524
  Receipt Date: 20160524
  Transmission Date: 20160815
  Serious: Yes (Hospitalization, Other)
  Sender: FDA-Public Use
  Company Number: JP-GLAXOSMITHKLINE-JP2016JPN026320

PATIENT
  Age: 36 Year
  Sex: Female
  Weight: 73 kg

DRUGS (7)
  1. RISPERIDONE OD [Concomitant]
     Dosage: 2 MG, 1D
     Dates: end: 20160221
  2. ZYPREXA [Concomitant]
     Active Substance: OLANZAPINE
     Dosage: 10 MG, 1D
     Dates: end: 20160221
  3. LAMICTAL [Suspect]
     Active Substance: LAMOTRIGINE
     Indication: EPILEPSY
     Dosage: 25 MG, QOD
     Route: 048
     Dates: start: 20160131, end: 20160212
  4. DEPAKENE [Concomitant]
     Active Substance: VALPROIC ACID
     Dosage: 300 MG, QD
     Dates: start: 20140212, end: 20160221
  5. LAMICTAL [Suspect]
     Active Substance: LAMOTRIGINE
     Dosage: 50 MG, QD
     Route: 048
     Dates: start: 20160220, end: 20160221
  6. DEPAKENE [Concomitant]
     Active Substance: VALPROIC ACID
     Indication: EPILEPSY
     Dosage: 100 MG, QD
     Dates: start: 20130805, end: 20160211
  7. LAMICTAL [Suspect]
     Active Substance: LAMOTRIGINE
     Indication: EPILEPSY
     Dosage: 25 MG, QD
     Route: 048
     Dates: start: 20160213, end: 20160219

REACTIONS (12)
  - Ocular hyperaemia [Unknown]
  - Eye discharge [Unknown]
  - Pyrexia [Unknown]
  - Skin erosion [Unknown]
  - Angina bullosa haemorrhagica [Unknown]
  - Rash [Unknown]
  - Generalised erythema [Unknown]
  - Scab [Unknown]
  - Vulval disorder [Unknown]
  - Oral mucosal blistering [Unknown]
  - Oral mucosa erosion [Unknown]
  - Stevens-Johnson syndrome [Recovering/Resolving]

NARRATIVE: CASE EVENT DATE: 20160221
